FAERS Safety Report 7814774-0 (Version None)
Quarter: 2011Q4

REPORT INFORMATION
  Report Type: 
  Country: None (occurrence: None)
  Receive Date: 20111013
  Receipt Date: 20111013
  Transmission Date: 20120403
  Serious: Yes (Other)
  Sender: FDA-Public Use
  Company Number: None

PATIENT
  Age: 68 Year
  Sex: Female
  Weight: 79.5 kg

DRUGS (1)
  1. AMOXICILLIN [Suspect]
     Indication: ENDODONTIC PROCEDURE
     Dosage: 500 MG 1 CAPSULE 3X DAY ORAL
     Route: 048
     Dates: start: 20110901, end: 20110906

REACTIONS (7)
  - CHILLS [None]
  - DIARRHOEA [None]
  - PRODUCT CONTAMINATION [None]
  - NAUSEA [None]
  - VOMITING [None]
  - ANXIETY [None]
  - DYSGEUSIA [None]
